FAERS Safety Report 10522638 (Version 1)
Quarter: 2014Q4

REPORT INFORMATION
  Report Type: Spontaneous
  Country: US (occurrence: None)
  Receive Date: 20141014
  Receipt Date: 20141014
  Transmission Date: 20150528
  Serious: Yes (Hospitalization)
  Sender: FDA-Public Use
  Company Number: None

PATIENT
  Age: 82 Year
  Sex: Male
  Weight: 89.5 kg

DRUGS (1)
  1. CEFEPIME [Suspect]
     Active Substance: CEFEPIME\CEFEPIME HYDROCHLORIDE
     Indication: OTITIS EXTERNA
     Route: 042
     Dates: start: 20140711, end: 20140805

REACTIONS (2)
  - Mental status changes [None]
  - Delirium [None]

NARRATIVE: CASE EVENT DATE: 20140805
